FAERS Safety Report 15609377 (Version 3)
Quarter: 2019Q1

REPORT INFORMATION
  Report Type: Report from Study
  Country: None (occurrence: US)
  Receive Date: 20181112
  Receipt Date: 20190112
  Transmission Date: 20190417
  Serious: Yes (Life-Threatening, Hospitalization, Disabling, Other)
  Sender: FDA-Public Use
  Company Number: US-ABBVIE-18K-163-2548900-00

PATIENT
  Age: 56 Year
  Sex: Female
  Weight: 104.42 kg

DRUGS (4)
  1. HYDROCHLOROTHIAZIDE. [Concomitant]
     Active Substance: HYDROCHLOROTHIAZIDE
     Indication: PRODUCT USED FOR UNKNOWN INDICATION
  2. LEVOTHYROXINE. [Concomitant]
     Active Substance: LEVOTHYROXINE
     Indication: PRODUCT USED FOR UNKNOWN INDICATION
  3. MELOXICAM. [Concomitant]
     Active Substance: MELOXICAM
     Indication: PRODUCT USED FOR UNKNOWN INDICATION
  4. HUMIRA [Suspect]
     Active Substance: ADALIMUMAB
     Indication: PSORIATIC ARTHROPATHY
     Route: 058
     Dates: start: 201802

REACTIONS (8)
  - Weight increased [Not Recovered/Not Resolved]
  - Arthralgia [Not Recovered/Not Resolved]
  - Osteochondrosis [Not Recovered/Not Resolved]
  - Keratoacanthoma [Recovered/Resolved]
  - Oesophageal spasm [Not Recovered/Not Resolved]
  - Oropharyngeal spasm [Not Recovered/Not Resolved]
  - Back disorder [Not Recovered/Not Resolved]
  - Thyroid neoplasm [Not Recovered/Not Resolved]

NARRATIVE: CASE EVENT DATE: 2018
